FAERS Safety Report 18886414 (Version 1)
Quarter: 2021Q1

REPORT INFORMATION
  Report Type: Spontaneous
  Country: GB (occurrence: GB)
  Receive Date: 20210212
  Receipt Date: 20210212
  Transmission Date: 20210420
  Serious: Yes (Life-Threatening, Other)
  Sender: FDA-Public Use
  Company Number: GB-TEVA-2021-GB-1876507

PATIENT
  Age: 34 Year
  Sex: Female
  Weight: 83 kg

DRUGS (10)
  1. KETOCONAZOLE. [Concomitant]
     Active Substance: KETOCONAZOLE
     Dosage: USE AS DIRECTED
     Dates: start: 20201214
  2. DERMOL [Concomitant]
     Active Substance: BENZALKONIUM CHLORIDE\CHLORHEXIDINE HYDROCHLORIDE\ISOPROPYL MYRISTATE\PARAFFIN
     Dosage: APPLY TO SKIN OR USE AS A SOAP SUBSTITUTE
     Route: 061
     Dates: start: 20181113, end: 20201130
  3. SERTRALINE [Concomitant]
     Active Substance: SERTRALINE HYDROCHLORIDE
     Dosage: 200 MILLIGRAM DAILY;
     Route: 048
     Dates: start: 20190509
  4. PREGABALIN. [Concomitant]
     Active Substance: PREGABALIN
     Dosage: 2 DOSAGE FORMS DAILY;
     Dates: start: 20171121
  5. PROMETHAZINE HYDROCHLORIDE. [Concomitant]
     Active Substance: PROMETHAZINE HYDROCHLORIDE
     Dosage: 1 DF AT NIGHT, PLUS AN...
     Dates: start: 20180219
  6. NIZORAL [Concomitant]
     Active Substance: KETOCONAZOLE
     Dosage: APPLY AS DIRECTED FOR 2?4 WEEKS...
     Dates: start: 20200117, end: 20201130
  7. ZEROBASE [Concomitant]
     Active Substance: MINERAL OIL\PARAFFIN
     Dosage: APPLY
     Route: 061
     Dates: start: 20201028, end: 20201130
  8. MIRTAZAPINE. [Suspect]
     Active Substance: MIRTAZAPINE
     Route: 048
     Dates: start: 20210115
  9. DIPROSALIC [Concomitant]
     Active Substance: BETAMETHASONE DIPROPIONATE
     Dosage: APPLY A FEW DROPS ONCE OR TWICE A DAY
     Dates: start: 20201208, end: 20201209
  10. SYNALAR [Concomitant]
     Active Substance: FLUOCINOLONE ACETONIDE
     Dosage: 1 DOSAGE FORMS DAILY; APPLY THINLY AS PER SPECIALIST ADVICE
     Route: 061
     Dates: start: 20201214, end: 20210111

REACTIONS (1)
  - Suicidal ideation [Recovered/Resolved]
